FAERS Safety Report 4748192-9 (Version None)
Quarter: 2005Q3

REPORT INFORMATION
  Report Type: 
  Country: None (occurrence: None)
  Receive Date: 20050818
  Receipt Date: 20050803
  Transmission Date: 20060218
  Serious: Yes (Hospitalization)
  Sender: FDA-Public Use
  Company Number: CH-JNJFOC-20050802074

PATIENT
  Sex: Male
  Weight: 70 kg

DRUGS (2)
  1. CAELYX [Suspect]
     Indication: MYCOSIS FUNGOIDES
     Route: 042
  2. MORPHINE SULFATE [Concomitant]

REACTIONS (3)
  - INFECTION [None]
  - LYMPHADENOPATHY [None]
  - PAIN [None]
